FAERS Safety Report 5495180-3 (Version None)
Quarter: 2007Q4

REPORT INFORMATION
  Report Type: 
  Country: None (occurrence: None)
  Receive Date: 20071024
  Receipt Date: 20071015
  Transmission Date: 20080405
  Serious: Yes (Other)
  Sender: FDA-Public Use
  Company Number: US-ABBOTT-07P-163-0421113-00

PATIENT
  Age: 30 Year
  Sex: Female

DRUGS (3)
  1. DEPAKOTE [Suspect]
     Indication: EPILEPSY
     Dates: start: 19981201
  2. PHENYTOIN [Suspect]
     Indication: EPILEPSY
     Dates: start: 19981201
  3. FOLIC ACID [Concomitant]
     Indication: DRUG USE FOR UNKNOWN INDICATION
     Dates: start: 19981201

REACTIONS (1)
  - ECTOPIC PREGNANCY [None]
